FAERS Safety Report 21068016 (Version 1)
Quarter: 2022Q3

REPORT INFORMATION
  Report Type: Spontaneous
  Country: US (occurrence: US)
  Receive Date: 20220712
  Receipt Date: 20220712
  Transmission Date: 20221027
  Serious: Yes (Other)
  Sender: FDA-Public Use
  Company Number: US-SUN PHARMACEUTICAL INDUSTRIES LTD-2022R1-343934

PATIENT
  Sex: Male
  Weight: .75 kg

DRUGS (3)
  1. TOBRAMYCIN [Suspect]
     Active Substance: TOBRAMYCIN
     Indication: Endocarditis
     Dosage: 4 MILLIGRAM/KILOGRAM, DAILY
     Route: 042
  2. TOBRAMYCIN [Suspect]
     Active Substance: TOBRAMYCIN
     Dosage: 4.5 MILLIGRAM/KILOGRAM, DAILY
     Route: 042
  3. TOBRAMYCIN [Suspect]
     Active Substance: TOBRAMYCIN
     Dosage: 4.5 MILLIGRAM/KILOGRAM, EVERY 36 HOUR
     Route: 042

REACTIONS (1)
  - Acute kidney injury [Recovering/Resolving]
